FAERS Safety Report 20866228 (Version 1)
Quarter: 2022Q2

REPORT INFORMATION
  Report Type: Spontaneous
  Country: US (occurrence: None)
  Receive Date: 20220523
  Receipt Date: 20220523
  Transmission Date: 20220721
  Serious: Yes (Life-Threatening, Hospitalization)
  Sender: FDA-Public Use
  Company Number: None

PATIENT
  Age: 77 Year
  Sex: Male
  Weight: 79 kg

DRUGS (1)
  1. WARFARIN SODIUM [Suspect]
     Active Substance: WARFARIN SODIUM
     Indication: Pulmonary embolism
     Route: 048
     Dates: start: 20170322, end: 20210924

REACTIONS (10)
  - Retroperitoneal haemorrhage [None]
  - Dizziness [None]
  - Dizziness [None]
  - Nausea [None]
  - Vomiting [None]
  - Syncope [None]
  - International normalised ratio increased [None]
  - Hypotension [None]
  - Haemoglobin decreased [None]
  - Haematocrit decreased [None]

NARRATIVE: CASE EVENT DATE: 20210920
